FAERS Safety Report 22354811 (Version 1)
Quarter: 2023Q2

REPORT INFORMATION
  Report Type: Spontaneous
  Country: CN (occurrence: CN)
  Receive Date: 20230523
  Receipt Date: 20230523
  Transmission Date: 20230722
  Serious: Yes (Life-Threatening, Hospitalization, Other)
  Sender: FDA-Public Use
  Company Number: CN-BRISTOL-MYERS SQUIBB COMPANY-2023-063613

PATIENT
  Age: 41 Year
  Sex: Male

DRUGS (4)
  1. GEMCITABINE HYDROCHLORIDE [Suspect]
     Active Substance: GEMCITABINE HYDROCHLORIDE
     Indication: Cholangiocarcinoma
     Dosage: RESUMED WITH A COMBINED REGIMEN OF GEMCITABINE CISPLATIN, UNKNOWN
     Route: 065
  2. GEMCITABINE HYDROCHLORIDE [Suspect]
     Active Substance: GEMCITABINE HYDROCHLORIDE
     Dosage: 6 DOSES GEMCITABINE NANOPARTICLE ALBUMIN?BOUND PACLITAXEL , UNKNOWN
     Route: 065
  3. CISPLATIN [Suspect]
     Active Substance: CISPLATIN
     Indication: Cholangiocarcinoma
     Dosage: UNK, UNKNOWN
     Route: 065
  4. PACLITAXEL [Suspect]
     Active Substance: PACLITAXEL
     Indication: Cholangiocarcinoma
     Dosage: 6 DOSES, UNKNOWN
     Route: 042

REACTIONS (4)
  - Wellens^ syndrome [Recovered/Resolved]
  - Angina pectoris [Recovered/Resolved]
  - Acute coronary syndrome [Recovered/Resolved]
  - Coronary artery stenosis [Recovered/Resolved]
